FAERS Safety Report 4544606-8 (Version None)
Quarter: 2004Q4

REPORT INFORMATION
  Report Type: 
  Country: None (occurrence: None)
  Receive Date: 20041230
  Receipt Date: 20041224
  Transmission Date: 20050328
  Serious: Yes (Hospitalization)
  Sender: FDA-Public Use
  Company Number: 8008406

PATIENT
  Age: 70 Year
  Sex: Female

DRUGS (5)
  1. KEPPRA [Suspect]
     Indication: EPILEPSY
     Dosage: 1 DF 2/D PO
     Route: 048
     Dates: start: 20041026
  2. URBANYL [Suspect]
     Indication: EPILEPSY
     Dosage: PO
     Route: 048
  3. EPITOMAX [Suspect]
     Indication: EPILEPSY
     Dosage: 1 DF 2/D PO
     Route: 048
  4. IMUREL [Suspect]
     Indication: SYSTEMIC LUPUS ERYTHEMATOSUS
     Dosage: 1 DF /D PO
     Route: 048
     Dates: end: 20041109
  5. PHENOBARBITAL TAB [Suspect]
     Indication: EPILEPSY
     Dosage: 25 MG 1/D PO
     Route: 048
     Dates: end: 20040826

REACTIONS (3)
  - CONDITION AGGRAVATED [None]
  - HEPATITIS CHOLESTATIC [None]
  - PANCREATIC ATROPHY [None]
